FAERS Safety Report 17766917 (Version 1)
Quarter: 2020Q2

REPORT INFORMATION
  Report Type: Spontaneous
  Country: US (occurrence: US)
  Receive Date: 20200511
  Receipt Date: 20200511
  Transmission Date: 20200714
  Serious: Yes (Death, Hospitalization, Disabling, Other)
  Sender: FDA-Public Use
  Company Number: US-SA-2020SA121249

PATIENT
  Sex: Female

DRUGS (1)
  1. ZANTAC [Suspect]
     Active Substance: RANITIDINE HYDROCHLORIDE
     Dosage: UNK
     Dates: start: 2000

REACTIONS (9)
  - Anxiety [Fatal]
  - Disability [Unknown]
  - Pain [Unknown]
  - Life expectancy shortened [Unknown]
  - Brain neoplasm malignant [Fatal]
  - Hospitalisation [Unknown]
  - Deformity [Unknown]
  - Injury [Fatal]
  - Loss of personal independence in daily activities [Unknown]

NARRATIVE: CASE EVENT DATE: 2017
